FAERS Safety Report 9592403 (Version 2)
Quarter: 2014Q2

REPORT INFORMATION
  Report Type: Report from Study
  Country: CA (occurrence: CA)
  Receive Date: 20131004
  Receipt Date: 20140523
  Transmission Date: 20141212
  Serious: Yes (Hospitalization)
  Sender: FDA-Public Use
  Company Number: CA-JNJFOC-20130917744

PATIENT
  Age: 29 Year
  Sex: Female
  Weight: 44.91 kg

DRUGS (5)
  1. REMICADE [Suspect]
     Indication: CROHN^S DISEASE
     Route: 042
     Dates: start: 20131121
  2. REMICADE [Suspect]
     Indication: CROHN^S DISEASE
     Route: 042
     Dates: start: 20130813
  3. IMURAN [Concomitant]
     Route: 048
  4. CITALOPRAM [Concomitant]
     Route: 048
  5. ZOPICLONE [Concomitant]
     Route: 048

REACTIONS (1)
  - Abdominal pain [Not Recovered/Not Resolved]
